FAERS Safety Report 20756949 (Version 2)
Quarter: 2022Q2

REPORT INFORMATION
  Report Type: Spontaneous
  Country: US (occurrence: None)
  Receive Date: 20220427
  Receipt Date: 20220512
  Transmission Date: 20220721
  Serious: No
  Sender: FDA-Public Use
  Company Number: 2022A137473

PATIENT
  Age: 44 Year
  Sex: Male

DRUGS (1)
  1. TEZSPIRE [Suspect]
     Active Substance: TEZEPELUMAB-EKKO
     Indication: Asthma
     Route: 065
     Dates: start: 20220329

REACTIONS (4)
  - Throat irritation [Unknown]
  - Gingival discomfort [Unknown]
  - Cough [Unknown]
  - Ear canal stenosis [Unknown]

NARRATIVE: CASE EVENT DATE: 20220329
